FAERS Safety Report 21554985 (Version 1)
Quarter: 2022Q4

REPORT INFORMATION
  Report Type: Spontaneous
  Country: US (occurrence: US)
  Receive Date: 20221104
  Receipt Date: 20221104
  Transmission Date: 20230112
  Serious: Yes (Other)
  Sender: FDA-Public Use
  Company Number: US-ARBOR PHARMACEUTICALS, LLC-US-2022ARB002743

PATIENT
  Sex: Female
  Weight: 65.8 kg

DRUGS (36)
  1. EDARBI [Suspect]
     Active Substance: AZILSARTAN KAMEDOXOMIL
     Indication: Blood pressure increased
     Dosage: 40 MG
     Route: 065
     Dates: start: 202209, end: 20221012
  2. KORLYM [Suspect]
     Active Substance: MIFEPRISTONE
     Indication: Cushing^s syndrome
     Dosage: 300 MILLIGRAM, DAILY
     Route: 048
     Dates: start: 20200918, end: 20201104
  3. KORLYM [Suspect]
     Active Substance: MIFEPRISTONE
     Dosage: 300 MG, QOD
     Route: 048
     Dates: start: 20201104, end: 20220708
  4. KORLYM [Suspect]
     Active Substance: MIFEPRISTONE
     Dosage: 300 MG
     Route: 048
     Dates: start: 202207
  5. ACYCLOVIR [Concomitant]
     Active Substance: ACYCLOVIR
     Indication: Product used for unknown indication
     Dosage: UNK
  6. CLOBETASOL [Concomitant]
     Active Substance: CLOBETASOL
     Indication: Product used for unknown indication
     Dosage: UNK
  7. DICLOFENAC [Concomitant]
     Active Substance: DICLOFENAC
     Indication: Product used for unknown indication
     Dosage: UNK
  8. FLUOCINONIDE [Concomitant]
     Active Substance: FLUOCINONIDE
     Indication: Product used for unknown indication
     Dosage: UNK
  9. FUROSEMIDE [Concomitant]
     Active Substance: FUROSEMIDE
     Indication: Product used for unknown indication
     Dosage: 20 MG, QD
     Dates: end: 20221012
  10. FUROSEMIDE [Concomitant]
     Active Substance: FUROSEMIDE
     Dosage: 20 MG, BID, FOR A WEEK
     Dates: start: 20221012
  11. IBUPROFEN [Concomitant]
     Active Substance: IBUPROFEN
     Indication: Product used for unknown indication
     Dosage: UNK
  12. KLOR-CON [Concomitant]
     Active Substance: POTASSIUM CHLORIDE
     Indication: Product used for unknown indication
     Dosage: UNK
  13. LIDOCAINE [Concomitant]
     Active Substance: LIDOCAINE
     Indication: Product used for unknown indication
     Dosage: UNK
  14. LISINOPRIL [Concomitant]
     Active Substance: LISINOPRIL
     Indication: Blood pressure increased
     Dosage: UNK
  15. LISINOPRIL [Concomitant]
     Active Substance: LISINOPRIL
     Dosage: 2.5 MG (2 TABLETS), AFTER 2 HOURS , 2.5 MG (1 TABLET)
     Dates: start: 20220408, end: 20220408
  16. LISINOPRIL [Concomitant]
     Active Substance: LISINOPRIL
     Dosage: 2.5 MG, 2 TABLETS
     Dates: start: 20220411, end: 20220411
  17. LISINOPRIL [Concomitant]
     Active Substance: LISINOPRIL
     Dosage: 2.5 MG, 2 TABLETS
     Dates: start: 20220412, end: 20220517
  18. LISINOPRIL [Concomitant]
     Active Substance: LISINOPRIL
     Dosage: INCREASED TO 15 MG IN THE MORNING AND 10 MG IN THE EVENING
     Dates: start: 20220517
  19. LUBRICANT ESTIAN [Concomitant]
     Indication: Product used for unknown indication
     Dosage: UNK
  20. METOPROLOL [Concomitant]
     Active Substance: METOPROLOL
     Indication: Blood pressure increased
     Dosage: UNK
  21. METOPROLOL [Concomitant]
     Active Substance: METOPROLOL
     Dosage: 25 MG, 2 TABLETS
     Dates: start: 20220408, end: 20220408
  22. METOPROLOL [Concomitant]
     Active Substance: METOPROLOL
     Dosage: UNK
     Dates: start: 20220411, end: 20220412
  23. METOPROLOL [Concomitant]
     Active Substance: METOPROLOL
     Dosage: 25 MG, BID
     Dates: start: 20220412
  24. OMEPRAZOLE [Concomitant]
     Active Substance: OMEPRAZOLE
     Indication: Product used for unknown indication
     Dosage: UNK
  25. SIROLIMUS [Concomitant]
     Active Substance: SIROLIMUS
     Indication: Product used for unknown indication
     Dosage: UNK
  26. SULFAMETHOXAZOLE AND TRIMETHOPRIM [Concomitant]
     Active Substance: SULFAMETHOXAZOLE\TRIMETHOPRIM
     Indication: Product used for unknown indication
     Dosage: UNK
  27. TOBRADEX [Concomitant]
     Active Substance: DEXAMETHASONE\TOBRAMYCIN
     Indication: Product used for unknown indication
     Dosage: UNK
  28. VORICONAZOLE [Concomitant]
     Active Substance: VORICONAZOLE
     Indication: Product used for unknown indication
     Dosage: UNK
  29. XARELTO [Concomitant]
     Active Substance: RIVAROXABAN
     Indication: Product used for unknown indication
     Dosage: UNK
  30. OCUVITE [ASCORBIC ACID;RETINOL;TOCOPHEROL] [Concomitant]
     Indication: Product used for unknown indication
     Dosage: UNK
  31. FISH OIL [Concomitant]
     Active Substance: FISH OIL
     Indication: Product used for unknown indication
     Dosage: UNK
  32. VITAMIN D3 [Concomitant]
     Active Substance: CHOLECALCIFEROL
     Indication: Product used for unknown indication
     Dosage: UNK
  33. VITAMIN E [Concomitant]
     Active Substance: .ALPHA.-TOCOPHEROL
     Indication: Product used for unknown indication
     Dosage: UNK
  34. VITAMIN C [Concomitant]
     Active Substance: ASCORBIC ACID
     Indication: Product used for unknown indication
     Dosage: UNK
  35. VITAMINS [Concomitant]
     Active Substance: VITAMINS
     Indication: Product used for unknown indication
     Dosage: UNK
  36. COLLAGEN [Concomitant]
     Active Substance: COLLAGEN
     Indication: Product used for unknown indication
     Dosage: UNK

REACTIONS (3)
  - Blood pressure increased [Not Recovered/Not Resolved]
  - Fluid retention [Unknown]
  - Muscle spasms [Unknown]

NARRATIVE: CASE EVENT DATE: 20220101
